FAERS Safety Report 4640342-8 (Version None)
Quarter: 2005Q2

REPORT INFORMATION
  Report Type: 
  Country: None (occurrence: None)
  Receive Date: 20050419
  Receipt Date: 20050408
  Transmission Date: 20051028
  Serious: Yes (Hospitalization)
  Sender: FDA-Public Use
  Company Number: 2005AD000026

PATIENT
  Age: 7 Year
  Sex: Female

DRUGS (1)
  1. CEPHALEXIN [Suspect]
     Dosage: 125 MG; QID

REACTIONS (15)
  - ABDOMINAL PAIN [None]
  - COMPLEMENT FACTOR C3 INCREASED [None]
  - DYSURIA [None]
  - GLOMERULONEPHRITIS ACUTE [None]
  - HAEMATURIA [None]
  - HAEMODIALYSIS [None]
  - KIDNEY ENLARGEMENT [None]
  - MALAISE [None]
  - OLIGURIA [None]
  - POST PROCEDURAL COMPLICATION [None]
  - PROTEIN URINE PRESENT [None]
  - PROTEINURIA [None]
  - PYREXIA [None]
  - RENAL TUBULAR NECROSIS [None]
  - TONSILLITIS [None]
